FAERS Safety Report 9012848 (Version 2)
Quarter: 2013Q1

REPORT INFORMATION
  Report Type: Spontaneous
  Country: IN (occurrence: IN)
  Receive Date: 20130114
  Receipt Date: 20130201
  Transmission Date: 20140127
  Serious: Yes (Death)
  Sender: FDA-Public Use
  Company Number: IN-009507513-1301IND005340

PATIENT
  Age: 76 Year
  Sex: Female

DRUGS (2)
  1. JANUMET [Suspect]
     Dosage: UNK UNK, QD
     Route: 048
  2. ECOSPRIN [Concomitant]

REACTIONS (1)
  - Myocardial infarction [Fatal]
